FAERS Safety Report 7127920-1 (Version None)
Quarter: 2010Q4

REPORT INFORMATION
  Report Type: 
  Country: None (occurrence: None)
  Receive Date: 20101112
  Receipt Date: 20101004
  Transmission Date: 20110411
  Serious: Yes (Hospitalization)
  Sender: FDA-Public Use
  Company Number: 2010003897

PATIENT
  Age: 41 Year
  Sex: Male

DRUGS (1)
  1. TARCEVA [Suspect]
     Indication: NON-SMALL CELL LUNG CANCER STAGE IV
     Dosage: 150 MG, QD, ORAL
     Route: 048
     Dates: start: 20091101

REACTIONS (4)
  - COLLAPSE OF LUNG [None]
  - DIARRHOEA [None]
  - LUNG INFECTION [None]
  - RASH [None]
